FAERS Safety Report 5168437-3 (Version None)
Quarter: 2006Q4

REPORT INFORMATION
  Report Type: 
  Country: None (occurrence: None)
  Receive Date: 20061208
  Receipt Date: 20060505
  Transmission Date: 20070319
  Serious: Yes (Life-Threatening, Hospitalization)
  Sender: FDA-Public Use
  Company Number: DE-ROCHE-447075

PATIENT
  Age: 63 Year
  Sex: Male

DRUGS (1)
  1. ROACCUTAN [Suspect]
     Indication: NEUROENDOCRINE CARCINOMA
     Route: 048

REACTIONS (5)
  - CEREBRAL INFARCTION [None]
  - LEUKOCYTOCLASTIC VASCULITIS [None]
  - MUSCULAR WEAKNESS [None]
  - PAIN IN EXTREMITY [None]
  - SINUS TACHYCARDIA [None]
